FAERS Safety Report 8129689-0 (Version None)
Quarter: 2012Q1

REPORT INFORMATION
  Report Type: 
  Country: None (occurrence: None)
  Receive Date: 20120210
  Receipt Date: 20120207
  Transmission Date: 20120608
  Serious: Yes (Hospitalization)
  Sender: FDA-Public Use
  Company Number: KR-ELI_LILLY_AND_COMPANY-KR201111005941

PATIENT
  Age: 68 Year
  Sex: Female

DRUGS (2)
  1. HUMALOG MIX 50/50 [Suspect]
     Dosage: 25 U, TID
     Route: 058
     Dates: start: 20111116
  2. HUMALOG MIX 50/50 [Suspect]
     Indication: TYPE 2 DIABETES MELLITUS
     Dosage: 25 U, TID
     Route: 058
     Dates: start: 20110801, end: 20111110

REACTIONS (3)
  - POLYP [None]
  - WHITE BLOOD CELLS URINE [None]
  - INTESTINAL HAEMORRHAGE [None]
